FAERS Safety Report 8909286 (Version 1)
Quarter: 2012Q4

REPORT INFORMATION
  Report Type: Spontaneous
  Country: US (occurrence: None)
  Receive Date: 20121107
  Receipt Date: 20121107
  Transmission Date: 20130627
  Serious: Yes (Hospitalization)
  Sender: FDA-Public Use
  Company Number: AUR-APL-2012-04616

PATIENT
  Sex: Female

DRUGS (9)
  1. METFORMIN (METFORMIN) [Suspect]
     Indication: DRUG USE FOR UNKNOWN INDICATION
  2. GEMFIBROZIL (GEMFIBROZIL) [Concomitant]
  3. NIACIN (NICOTINIC ACID) [Concomitant]
  4. GLIPIZIDE (GLIPIZIDE) [Concomitant]
  5. FUROSEMIDE (FUROSEMIDE) [Concomitant]
  6. OMEPRAZOLE (OMEPRAZOLE) [Concomitant]
  7. RISPERDAL (RISPERIDONE) [Concomitant]
  8. LISINOPRIL (LISINOPRIL) [Concomitant]
  9. ASPIRIN (ACETYLSALICYLIC ACID) [Suspect]

REACTIONS (8)
  - International normalised ratio increased [None]
  - Aspartate aminotransferase increased [None]
  - Alanine aminotransferase increased [None]
  - Blood bilirubin increased [None]
  - Coagulopathy [None]
  - Hepatitis viral [None]
  - Platelet count decreased [None]
  - Idiosyncratic drug reaction [None]
